FAERS Safety Report 5152665-7 (Version None)
Quarter: 2006Q4

REPORT INFORMATION
  Report Type: 
  Country: None (occurrence: None)
  Receive Date: 20061109
  Receipt Date: 20061020
  Transmission Date: 20070319
  Serious: Yes (Other)
  Sender: FDA-Public Use
  Company Number: 2006BH011504

PATIENT
  Age: 38 Year
  Sex: Male
  Weight: 102.0593 kg

DRUGS (6)
  1. GAMMAGARD S/D [Suspect]
     Indication: IMMUNODEFICIENCY COMMON VARIABLE
     Dosage: 45 GM; EVERY 3WK; IV ; 45 GM IV
     Route: 042
     Dates: start: 20001207, end: 20060616
  2. GAMMAGARD S/D [Suspect]
     Indication: IMMUNODEFICIENCY COMMON VARIABLE
     Dosage: 45 GM; EVERY 3WK; IV ; 45 GM IV
     Route: 042
     Dates: start: 20060619
  3. . [Concomitant]
  4. FLUTTERVALVE [Concomitant]
  5. TYLENOL [Concomitant]
  6. DIPHENHYDRAMINE HCL [Concomitant]

REACTIONS (5)
  - ASTHENIA [None]
  - HEMIPARESIS [None]
  - PALPITATIONS [None]
  - PUPILLARY REFLEX IMPAIRED [None]
  - SYNCOPE [None]
